FAERS Safety Report 19610434 (Version 3)
Quarter: 2021Q4

REPORT INFORMATION
  Report Type: Spontaneous
  Country: JP (occurrence: JP)
  Receive Date: 20210726
  Receipt Date: 20211111
  Transmission Date: 20220303
  Serious: Yes (Death)
  Sender: FDA-Public Use
  Company Number: JP-ALLERGAN-2126605US

PATIENT
  Sex: Female
  Weight: 51.7 kg

DRUGS (2)
  1. CITALOPRAM HYDROBROMIDE [Suspect]
     Active Substance: CITALOPRAM HYDROBROMIDE
     Indication: Product used for unknown indication
     Dosage: UNK
     Route: 048
  2. HYDROGEN CYANIDE [Suspect]
     Active Substance: HYDROGEN CYANIDE
     Indication: Product used for unknown indication
     Route: 065

REACTIONS (4)
  - Pulmonary oedema [Fatal]
  - Intentional overdose [Fatal]
  - Prescription drug used without a prescription [Unknown]
  - Poisoning [Fatal]
